FAERS Safety Report 9084444 (Version 1)
Quarter: 2013Q1

REPORT INFORMATION
  Report Type: Spontaneous
  Country: US (occurrence: US)
  Receive Date: 20130218
  Receipt Date: 20130218
  Transmission Date: 20140127
  Serious: Yes (Other)
  Sender: FDA-Public Use
  Company Number: PHEH2013US003799

PATIENT
  Age: 77 Year
  Sex: Male
  Weight: 72.56 kg

DRUGS (1)
  1. EXJADE [Suspect]
     Indication: IRON OVERLOAD
     Dosage: 750 MG, QD
     Route: 048
     Dates: start: 20121030

REACTIONS (2)
  - Melaena [Unknown]
  - Urine abnormality [Unknown]
